FAERS Safety Report 6115297-X (Version None)
Quarter: 2009Q1

REPORT INFORMATION
  Report Type: 
  Country: None (occurrence: None)
  Receive Date: 20090313
  Receipt Date: 20090312
  Transmission Date: 20090719
  Serious: Yes (Life-Threatening, Hospitalization)
  Sender: FDA-Public Use
  Company Number: BR-ASTRAZENECA-2009UW06504

PATIENT
  Age: 90 Year
  Sex: Female
  Weight: 64 kg

DRUGS (5)
  1. CRESTOR [Suspect]
     Dosage: 1/2 OF A 10 MG TABLET
     Route: 048
     Dates: start: 20090201
  2. LEXAPRO [Concomitant]
     Indication: DEPRESSION
     Route: 048
     Dates: start: 20081201
  3. AMLODIPINE BESYLATE [Concomitant]
     Indication: HYPERTENSION
     Route: 048
     Dates: start: 20090101
  4. INDAPAMIDE [Concomitant]
     Indication: HYPERTENSION
     Route: 048
     Dates: start: 20090101
  5. AZOPT [Concomitant]
     Indication: GLAUCOMA
     Route: 031
     Dates: start: 20070101

REACTIONS (6)
  - AMNESIA [None]
  - CONSTIPATION [None]
  - PRESYNCOPE [None]
  - PRURITUS [None]
  - RHINORRHOEA [None]
  - WEIGHT INCREASED [None]
